FAERS Safety Report 4808254-4 (Version None)
Quarter: 2005Q4

REPORT INFORMATION
  Report Type: 
  Country: None (occurrence: None)
  Receive Date: 20051021
  Receipt Date: 20051014
  Transmission Date: 20060501
  Serious: Yes (Hospitalization)
  Sender: FDA-Public Use
  Company Number: FR_020801333

PATIENT
  Age: 50 Year
  Sex: Male
  Weight: 70 kg

DRUGS (8)
  1. ZYPREXA [Suspect]
     Dosage: 15 MG/ DAY
     Dates: start: 20020321, end: 20020703
  2. MEPRONIZINE [Concomitant]
  3. TRANXENE [Concomitant]
  4. MOGADON (NITRAZEPAM) [Concomitant]
  5. NOCTRAN [Concomitant]
  6. ATHYMIL (MIANSERIN HYDROCHLORIDE) [Concomitant]
  7. IMOVANE (ZOPICLONE) [Concomitant]
  8. VALIUM [Concomitant]

REACTIONS (1)
  - NEUTROPENIA [None]
